FAERS Safety Report 4379376-X (Version None)
Quarter: 2004Q2

REPORT INFORMATION
  Report Type: 
  Country: None (occurrence: None)
  Receive Date: 20040610
  Receipt Date: 20031113
  Transmission Date: 20050107
  Serious: Yes (Hospitalization)
  Sender: FDA-Public Use
  Company Number: KII-2003-0010804

PATIENT
  Age: 57 Year
  Sex: Female

DRUGS (4)
  1. MORPHINE SULFATE [Suspect]
     Indication: PAIN
     Dosage: ORAL
     Route: 048
  2. AMITRIPTYLINE HCL [Suspect]
     Dosage: ORAL
     Route: 048
  3. ANTIDEPRESSANTS [Suspect]
     Dosage: ORAL
     Route: 048
  4. HYDROCODONE [Concomitant]

REACTIONS (8)
  - BACK PAIN [None]
  - BLOOD PH INCREASED [None]
  - BLOOD PRESSURE SYSTOLIC INCREASED [None]
  - CONFUSIONAL STATE [None]
  - DYSARTHRIA [None]
  - ELECTROCARDIOGRAM QRS COMPLEX PROLONGED [None]
  - MEDICATION ERROR [None]
  - MULTIPLE DRUG OVERDOSE [None]
